FAERS Safety Report 19508168 (Version 1)
Quarter: 2021Q3

REPORT INFORMATION
  Report Type: Spontaneous
  Country: ZA (occurrence: ZA)
  Receive Date: 20210708
  Receipt Date: 20210708
  Transmission Date: 20211014
  Serious: Yes (Hospitalization)
  Sender: FDA-Public Use
  Company Number: ZA-B.I. PHARMACEUTICALS,INC./RIDGEFIELD-2021-BI-113876

PATIENT
  Sex: Male

DRUGS (1)
  1. TWYNSTA [Suspect]
     Active Substance: AMLODIPINE BESYLATE\TELMISARTAN
     Indication: PRODUCT USED FOR UNKNOWN INDICATION
     Dosage: TWYNSTA 80/5 MG

REACTIONS (1)
  - Ankle operation [Unknown]
